FAERS Safety Report 10349702 (Version 1)
Quarter: 2014Q3

REPORT INFORMATION
  Report Type: Spontaneous
  Country: US (occurrence: None)
  Receive Date: 20140728
  Receipt Date: 20140728
  Transmission Date: 20150326
  Serious: No
  Sender: FDA-Public Use
  Company Number: None

PATIENT
  Age: 46 Year
  Sex: Female
  Weight: 58.97 kg

DRUGS (2)
  1. GABAPENTIN. [Suspect]
     Active Substance: GABAPENTIN
     Indication: HYPOAESTHESIA
     Dosage: 1 TABLET 4 TIMES PER DAY TAKEN BY MOUTH
     Route: 048
     Dates: start: 20140529, end: 20140724
  2. GABAPENTIN. [Suspect]
     Active Substance: GABAPENTIN
     Indication: NEURALGIA
     Dosage: 1 TABLET 4 TIMES PER DAY TAKEN BY MOUTH
     Route: 048
     Dates: start: 20140529, end: 20140724

REACTIONS (5)
  - Fall [None]
  - Product quality issue [None]
  - Product substitution issue [None]
  - Paraesthesia [None]
  - Drug ineffective [None]

NARRATIVE: CASE EVENT DATE: 20140529
